FAERS Safety Report 8377640-0 (Version None)
Quarter: 2012Q2

REPORT INFORMATION
  Report Type: 
  Country: None (occurrence: None)
  Receive Date: 20120522
  Receipt Date: 20120508
  Transmission Date: 20120825
  Serious: Yes (Other)
  Sender: FDA-Public Use
  Company Number: US-WATSON-2012-08315

PATIENT
  Sex: Male
  Weight: 16 kg

DRUGS (1)
  1. GELNIQUE [Suspect]
     Indication: INCONTINENCE
     Dosage: 1 SACHET, QD
     Route: 062
     Dates: start: 20120312, end: 20120315

REACTIONS (2)
  - HALLUCINATION [None]
  - AGITATION [None]
